FAERS Safety Report 8375502-6 (Version None)
Quarter: 2012Q1

REPORT INFORMATION
  Report Type: 
  Country: None (occurrence: None)
  Receive Date: 20120323
  Receipt Date: 20110506
  Transmission Date: 20120608
  Serious: Yes (Other)
  Sender: FDA-Public Use
  Company Number: 163-21880-11021607

PATIENT
  Age: 50 Year
  Sex: Female

DRUGS (3)
  1. REVLIMID [Suspect]
     Indication: MULTIPLE MYELOMA
     Dosage: 25 MG, DAILY X 3 WEEKS, PO
     Route: 048
     Dates: start: 20110114
  2. REVLIMID [Suspect]
  3. POTASSIUM CHLORIDE [Concomitant]

REACTIONS (3)
  - INFECTION [None]
  - HYPOKALAEMIA [None]
  - LABORATORY TEST ABNORMAL [None]
